FAERS Safety Report 8054557-2 (Version None)
Quarter: 2012Q1

REPORT INFORMATION
  Report Type: 
  Country: None (occurrence: None)
  Receive Date: 20120119
  Receipt Date: 20120104
  Transmission Date: 20120608
  Serious: Yes (Congenital Anomaly)
  Sender: FDA-Public Use
  Company Number: GB-BIOGENIDEC-2012BI000667

PATIENT
  Sex: Female
  Weight: 3 kg

DRUGS (1)
  1. TYSABRI [Suspect]
     Indication: MATERNAL EXPOSURE TIMING UNSPECIFIED
     Route: 064
     Dates: start: 20090907, end: 20110404

REACTIONS (1)
  - ANKYLOGLOSSIA CONGENITAL [None]
